FAERS Safety Report 6228176-4 (Version None)
Quarter: 2009Q2

REPORT INFORMATION
  Report Type: 
  Country: None (occurrence: None)
  Receive Date: 20090610
  Receipt Date: 20090610
  Transmission Date: 20091009
  Serious: Yes (Other)
  Sender: FDA-Public Use
  Company Number: None

PATIENT
  Age: 61 Year
  Sex: Female
  Weight: 88.4514 kg

DRUGS (2)
  1. METOCLOPRAMIDE [Suspect]
     Indication: IMPAIRED GASTRIC EMPTYING
     Dosage: 360 1 TABLET 4TIME DAY PO
     Route: 048
     Dates: start: 19970919, end: 20090608
  2. METCOLOPRAMIDE [Concomitant]

REACTIONS (2)
  - TARDIVE DYSKINESIA [None]
  - TREMOR [None]
